FAERS Safety Report 15616912 (Version 1)
Quarter: 2018Q4

REPORT INFORMATION
  Report Type: Spontaneous
  Country: US (occurrence: US)
  Receive Date: 20181109
  Receipt Date: 20181109
  Transmission Date: 20190205
  Serious: No
  Sender: FDA-Public Use
  Company Number: None

PATIENT
  Age: 62 Year
  Weight: 122.47 kg

DRUGS (1)
  1. STELARA [Suspect]
     Active Substance: USTEKINUMAB
     Indication: INGUINAL HERNIA
     Dosage: ?          OTHER FREQUENCY:WEEK 0 AND WEEK 4;?
     Route: 058
     Dates: start: 201805

REACTIONS (1)
  - Death [None]
